FAERS Safety Report 4594690-0 (Version None)
Quarter: 2005Q1

REPORT INFORMATION
  Report Type: 
  Country: None (occurrence: None)
  Receive Date: 20050301
  Receipt Date: 20041230
  Transmission Date: 20050727
  Serious: Yes (Hospitalization)
  Sender: FDA-Public Use
  Company Number: US-BRISTOL-MYERS SQUIBB COMPANY-12809950

PATIENT
  Age: 82 Year
  Sex: Male
  Weight: 78 kg

DRUGS (7)
  1. ERBITUX [Suspect]
     Indication: COLORECTAL CANCER METASTATIC
     Dosage: RECEIVED LOADING DOSE OF CETUXIMAB 760 MG IV ON 07-DEC-2004;SECOND DOSE OF 475 MG IV ON 14-DEC-2004.
     Route: 042
     Dates: start: 20041207, end: 20041207
  2. ALOXI [Concomitant]
     Indication: PREMEDICATION
     Dates: start: 20041207, end: 20041207
  3. BENADRYL [Concomitant]
     Indication: PREMEDICATION
     Dates: start: 20041207, end: 20041207
  4. DECADRON [Concomitant]
     Indication: PREMEDICATION
     Dates: start: 20041207, end: 20041207
  5. FLUOROURACIL [Concomitant]
  6. IRINOTECAN HCL [Concomitant]
  7. LEUCOVORIN [Concomitant]

REACTIONS (3)
  - DERMATITIS ACNEIFORM [None]
  - DERMATITIS ALLERGIC [None]
  - SKIN REACTION [None]
